FAERS Safety Report 6471076-5 (Version None)
Quarter: 2009Q4

REPORT INFORMATION
  Report Type: 
  Country: None (occurrence: None)
  Receive Date: 20091203
  Receipt Date: 20091122
  Transmission Date: 20100525
  Serious: Yes (Other)
  Sender: FDA-Public Use
  Company Number: PHHY2009MX51151

PATIENT
  Age: 84 Year
  Sex: Female

DRUGS (1)
  1. TEGRETOL [Suspect]
     Indication: EPILEPSY
     Dosage: 200 MG, QID
     Dates: start: 19940501

REACTIONS (2)
  - LOSS OF CONSCIOUSNESS [None]
  - THERMAL BURN [None]
